FAERS Safety Report 11747215 (Version 1)
Quarter: 2015Q4

REPORT INFORMATION
  Report Type: Spontaneous
  Country: MY (occurrence: MY)
  Receive Date: 20151117
  Receipt Date: 20151117
  Transmission Date: 20160304
  Serious: Yes (Other)
  Sender: FDA-Public Use
  Company Number: MY-TEVA-608780ISR

PATIENT
  Age: 10 Year
  Sex: Male

DRUGS (4)
  1. VINCRISTINE [Suspect]
     Active Substance: VINCRISTINE
     Indication: ACUTE LYMPHOCYTIC LEUKAEMIA
     Route: 042
  2. PREDNISOLONE. [Suspect]
     Active Substance: PREDNISOLONE
     Indication: ACUTE LYMPHOCYTIC LEUKAEMIA
     Route: 065
  3. ASPARAGINASE [Suspect]
     Active Substance: ASPARAGINASE
     Indication: ACUTE LYMPHOCYTIC LEUKAEMIA
     Route: 030
  4. METHOTREXATE [Suspect]
     Active Substance: METHOTREXATE
     Indication: ACUTE LYMPHOCYTIC LEUKAEMIA
     Route: 037

REACTIONS (1)
  - Posterior reversible encephalopathy syndrome [Recovered/Resolved]
